FAERS Safety Report 25663025 (Version 1)
Quarter: 2025Q3

REPORT INFORMATION
  Report Type: Spontaneous
  Country: EU (occurrence: EU)
  Receive Date: 20250811
  Receipt Date: 20250811
  Transmission Date: 20251020
  Serious: Yes (Hospitalization, Other)
  Sender: SANDOZ
  Company Number: EU-NOVPHSZ-PHHY2018IT092890

PATIENT
  Age: 69 Year
  Sex: Male

DRUGS (7)
  1. AMIKACIN [Suspect]
     Active Substance: AMIKACIN
     Indication: Antibiotic prophylaxis
     Dosage: 500 MG, QW
     Route: 042
  2. AMIKACIN [Suspect]
     Active Substance: AMIKACIN
     Indication: Multiple-drug resistance
     Dosage: UNK, QW
     Route: 065
  3. AMIKACIN [Suspect]
     Active Substance: AMIKACIN
     Indication: Pseudomonas infection
     Dosage: UNK, QW
     Route: 065
  4. CIPROFLOXACIN [Suspect]
     Active Substance: CIPROFLOXACIN
     Indication: Urinary tract infection
     Dosage: 250 MG, BID, 500 MG, QD (500 MILLIGRAM DAILY;)
     Route: 065
     Dates: start: 201709
  5. CIPROFLOXACIN [Suspect]
     Active Substance: CIPROFLOXACIN
     Indication: Cystitis haemorrhagic
     Dosage: 250 MG, BID,500 MG, QD (500 MILLIGRAM DAILY; EMPIRICALLY TREATED)
     Route: 065
     Dates: start: 201708
  6. LEVOFLOXACIN [Suspect]
     Active Substance: LEVOFLOXACIN
     Indication: Urinary tract infection
     Route: 065
     Dates: start: 2017
  7. LEVOFLOXACIN [Suspect]
     Active Substance: LEVOFLOXACIN
     Indication: Antibiotic prophylaxis
     Route: 065

REACTIONS (7)
  - Adenoma benign [Unknown]
  - Urinary tract infection [Unknown]
  - Bladder pain [Unknown]
  - Haematuria [Unknown]
  - Pelvic discomfort [Unknown]
  - Multiple-drug resistance [Unknown]
  - Pathogen resistance [Unknown]

NARRATIVE: CASE EVENT DATE: 20170901
